FAERS Safety Report 13012577 (Version 2)
Quarter: 2016Q4

REPORT INFORMATION
  Report Type: Spontaneous
  Country: US (occurrence: US)
  Receive Date: 20161209
  Receipt Date: 20161226
  Transmission Date: 20170207
  Serious: No
  Sender: FDA-Public Use
  Company Number: US-009507513-1612USA003499

PATIENT
  Sex: Female

DRUGS (1)
  1. CELESTONE [Suspect]
     Active Substance: BETAMETHASONE
     Route: 048

REACTIONS (2)
  - Drug hypersensitivity [Unknown]
  - Nausea [Unknown]
